FAERS Safety Report 4286898-9 (Version None)
Quarter: 2004Q1

REPORT INFORMATION
  Report Type: 
  Country: None (occurrence: None)
  Receive Date: 20040204
  Receipt Date: 20040120
  Transmission Date: 20041129
  Serious: Yes (Death, Hospitalization)
  Sender: FDA-Public Use
  Company Number: 2004AP00062

PATIENT
  Age: 60 Year
  Sex: Female

DRUGS (17)
  1. IRESSA [Suspect]
     Indication: LUNG ADENOCARCINOMA
     Dosage: 250 MG DAILY PO
     Route: 048
     Dates: start: 20031016, end: 20031119
  2. IRESSA [Suspect]
     Indication: NON-SMALL CELL LUNG CANCER
     Dosage: 250 MG DAILY PO
     Route: 048
     Dates: start: 20031016, end: 20031119
  3. IRESSA [Suspect]
     Indication: LUNG ADENOCARCINOMA
     Dosage: 250 MG DAILY PO
     Route: 048
     Dates: start: 20031210, end: 20031215
  4. IRESSA [Suspect]
     Indication: NON-SMALL CELL LUNG CANCER
     Dosage: 250 MG DAILY PO
     Route: 048
     Dates: start: 20031210, end: 20031215
  5. DECADRON [Suspect]
     Indication: METASTASES TO CENTRAL NERVOUS SYSTEM
     Dosage: 8 MG DAILY PO
     Route: 048
     Dates: start: 20031101, end: 20031210
  6. DECADRON [Suspect]
     Indication: METASTASES TO CENTRAL NERVOUS SYSTEM
     Dosage: 4 MG DAILY
     Dates: start: 20031210
  7. MORPHINE [Concomitant]
  8. LOXONIN [Concomitant]
  9. CYTOTEC [Concomitant]
  10. MS CONTIN [Concomitant]
  11. NAUZELIN [Concomitant]
  12. GASTER [Concomitant]
  13. ISOBIDE [Concomitant]
  14. GLYCEOL [Concomitant]
  15. CISPLATIN [Concomitant]
  16. NAVELBINE [Concomitant]
  17. DOCETAXEL [Concomitant]

REACTIONS (5)
  - DERMATITIS EXFOLIATIVE [None]
  - PNEUMONIA BACTERIAL [None]
  - PRODUCTIVE COUGH [None]
  - RESPIRATORY FAILURE [None]
  - STOMATITIS [None]
